FAERS Safety Report 10682033 (Version 9)
Quarter: 2016Q1

REPORT INFORMATION
  Report Type: Spontaneous
  Country: US (occurrence: US)
  Receive Date: 20141230
  Receipt Date: 20160201
  Transmission Date: 20160525
  Serious: Yes (Other)
  Sender: FDA-Public Use
  Company Number: US-PFIZER INC-2014352609

PATIENT
  Age: 67 Year
  Sex: Male
  Weight: 79 kg

DRUGS (15)
  1. KETOCONAZOLE. [Concomitant]
     Active Substance: KETOCONAZOLE
     Dosage: UNK, AS NEEDED
     Dates: start: 2008
  2. SUTENT [Suspect]
     Active Substance: SUNITINIB MALATE
     Indication: RENAL CANCER METASTATIC
     Dosage: 50 MG ONCE DAILY, 4 WEEKS ON AND 2 WEEKS OFF
     Dates: start: 20130731
  3. SUTENT [Suspect]
     Active Substance: SUNITINIB MALATE
     Dosage: 50 MG, CYCLIC (2 WEEKS ON/1 WEEK OFF)
     Dates: start: 20150211
  4. SUTENT [Suspect]
     Active Substance: SUNITINIB MALATE
     Dosage: 50 MG, CYCLIC (DAILY, 2 WEEKS ON AND 1 WEEK OFF)
  5. NEXIUM [Concomitant]
     Active Substance: ESOMEPRAZOLE MAGNESIUM
     Dosage: 22.3 MG, UNK
     Dates: start: 201405
  6. BETAMETHASONE. [Concomitant]
     Active Substance: BETAMETHASONE
     Dosage: UNK , AS NEEDED
     Dates: start: 2008
  7. METAMUCIL [Concomitant]
     Active Substance: PLANTAGO SEED
     Dosage: UNK
     Dates: start: 201406
  8. ATIVAN [Concomitant]
     Active Substance: LORAZEPAM
     Dosage: 1 MG, UNK
     Dates: start: 201408
  9. SUTENT [Suspect]
     Active Substance: SUNITINIB MALATE
     Dosage: 50 MG, 2 WEEKS ON AND 1 WEEK OFF
     Dates: start: 20140813, end: 201501
  10. SYNTHROID [Concomitant]
     Active Substance: LEVOTHYROXINE SODIUM
     Dosage: 200 ?G, UNK
     Dates: start: 1990
  11. FLOMAX [Concomitant]
     Active Substance: TAMSULOSIN HYDROCHLORIDE
     Dosage: 0.4 MG, UNK
     Dates: start: 2011
  12. PROBIOTICS [Concomitant]
     Active Substance: PROBIOTICS NOS
     Dosage: UNK
  13. SUTENT [Suspect]
     Active Substance: SUNITINIB MALATE
     Dosage: 50 MG ONCE DAILY, CYCLIC
     Dates: start: 2015
  14. BAYER ASPIRIN [Concomitant]
     Active Substance: ASPIRIN
     Dosage: 81 MG, UNK
     Dates: start: 2008
  15. IMODIUM [Concomitant]
     Active Substance: LOPERAMIDE HYDROCHLORIDE
     Dosage: UNK, AS NEEDED
     Dates: start: 2014

REACTIONS (24)
  - Dysgeusia [Not Recovered/Not Resolved]
  - Stomatitis [Not Recovered/Not Resolved]
  - Epistaxis [Recovering/Resolving]
  - Rash [Not Recovered/Not Resolved]
  - Disease progression [Unknown]
  - Dizziness [Not Recovered/Not Resolved]
  - Colitis [Unknown]
  - Epistaxis [Recovering/Resolving]
  - Hypotension [Unknown]
  - Pain in extremity [Not Recovered/Not Resolved]
  - Dry skin [Not Recovered/Not Resolved]
  - Hyperaesthesia [Unknown]
  - Diarrhoea [Recovered/Resolved]
  - Hair colour changes [Not Recovered/Not Resolved]
  - Renal cancer metastatic [Unknown]
  - Pancreatitis [Unknown]
  - Gastrointestinal disorder [Unknown]
  - Staphylococcal infection [Recovering/Resolving]
  - Myalgia [Not Recovered/Not Resolved]
  - Decreased appetite [Recovered/Resolved]
  - Dyspepsia [Unknown]
  - Erythema [Not Recovered/Not Resolved]
  - Oral disorder [Unknown]
  - Nasal discomfort [Not Recovered/Not Resolved]

NARRATIVE: CASE EVENT DATE: 201308
